FAERS Safety Report 8420649-9 (Version None)
Quarter: 2012Q2

REPORT INFORMATION
  Report Type: 
  Country: None (occurrence: None)
  Receive Date: 20120608
  Receipt Date: 20120601
  Transmission Date: 20120825
  Serious: No
  Sender: FDA-Public Use
  Company Number: US-BIOGENIDEC-2012BI019534

PATIENT
  Age: 51 Year
  Sex: Female

DRUGS (1)
  1. TYSABRI [Suspect]
     Indication: MULTIPLE SCLEROSIS
     Route: 042
     Dates: start: 20120208

REACTIONS (6)
  - RASH [None]
  - MENTAL IMPAIRMENT [None]
  - URTICARIA [None]
  - HEADACHE [None]
  - NAUSEA [None]
  - PRURITUS [None]
